FAERS Safety Report 19278950 (Version 1)
Quarter: 2021Q2

REPORT INFORMATION
  Report Type: Spontaneous
  Country: US (occurrence: US)
  Receive Date: 20210520
  Receipt Date: 20210520
  Transmission Date: 20210717
  Serious: Yes (Other)
  Sender: FDA-Public Use
  Company Number: None

PATIENT
  Age: 47 Year
  Sex: Male
  Weight: 130.95 kg

DRUGS (2)
  1. ASSURED NASAL RELIEF [Suspect]
     Active Substance: OXYMETAZOLINE HYDROCHLORIDE
     Dosage: ?          QUANTITY:.5 OUNCE(S);?
     Route: 055
     Dates: start: 20210430, end: 20210430
  2. MULTIVITAMIN [Concomitant]
     Active Substance: VITAMINS

REACTIONS (6)
  - Product contamination chemical [None]
  - Product taste abnormal [None]
  - Product odour abnormal [None]
  - Epistaxis [None]
  - Asthenia [None]
  - Dizziness [None]

NARRATIVE: CASE EVENT DATE: 20210430
